FAERS Safety Report 6781237-3 (Version None)
Quarter: 2010Q2

REPORT INFORMATION
  Report Type: 
  Country: None (occurrence: None)
  Receive Date: 20100621
  Receipt Date: 20100616
  Transmission Date: 20101027
  Serious: Yes (Death)
  Sender: FDA-Public Use
  Company Number: CH-ASTRAZENECA-2010SE28087

PATIENT
  Age: 16 Year
  Sex: Male

DRUGS (4)
  1. PROPOFOL [Suspect]
     Indication: SEDATION
     Route: 041
     Dates: start: 20100415, end: 20100420
  2. SINTENYL [Concomitant]
     Route: 041
     Dates: start: 20100415, end: 20100420
  3. DORMICUM [Concomitant]
     Route: 041
     Dates: start: 20100415, end: 20100420
  4. PANTOTHAL [Concomitant]
     Dosage: 400 MG TOTAL
     Route: 040
     Dates: start: 20100415, end: 20100420

REACTIONS (5)
  - BLOOD CREATINE PHOSPHOKINASE INCREASED [None]
  - HEPATOCELLULAR INJURY [None]
  - HYPERTRIGLYCERIDAEMIA [None]
  - INTRACRANIAL PRESSURE INCREASED [None]
  - RENAL FAILURE ACUTE [None]
